FAERS Safety Report 13490083 (Version 2)
Quarter: 2017Q2

REPORT INFORMATION
  Report Type: Spontaneous
  Country: US (occurrence: US)
  Receive Date: 20170427
  Receipt Date: 20170501
  Transmission Date: 20170830
  Serious: No
  Sender: FDA-Public Use
  Company Number: US-SHIRE-US201709515

PATIENT
  Sex: Female

DRUGS (1)
  1. XIIDRA [Suspect]
     Active Substance: LIFITEGRAST
     Indication: DRY EYE
     Dosage: 1 GTT (EACH EYE), UNKNOWN
     Route: 047
     Dates: start: 201704, end: 20170426

REACTIONS (2)
  - Lip swelling [Not Recovered/Not Resolved]
  - Lip disorder [Not Recovered/Not Resolved]

NARRATIVE: CASE EVENT DATE: 20170426
